FAERS Safety Report 24072491 (Version 5)
Quarter: 2025Q3

REPORT INFORMATION
  Report Type: Report from Study
  Country: US (occurrence: US)
  Receive Date: 20240710
  Receipt Date: 20250810
  Transmission Date: 20251020
  Serious: No
  Sender: ALEXION PHARMACEUTICALS
  Company Number: US-AstraZeneca-CH-00659223A

PATIENT
  Sex: Male

DRUGS (1)
  1. ULTOMIRIS [Suspect]
     Active Substance: RAVULIZUMAB-CWVZ
     Indication: Myasthenia gravis

REACTIONS (10)
  - Fatigue [Recovering/Resolving]
  - Feeling abnormal [Unknown]
  - Muscular weakness [Recovering/Resolving]
  - Fall [Recovering/Resolving]
  - Depression [Recovering/Resolving]
  - Skin papilloma [Unknown]
  - Lipoma [Unknown]
  - Weight increased [Recovering/Resolving]
  - Balance disorder [Recovering/Resolving]
  - Dizziness [Recovering/Resolving]

NARRATIVE: CASE EVENT DATE: 20240101
